FAERS Safety Report 9212948 (Version 1)
Quarter: 2013Q2

REPORT INFORMATION
  Report Type: Report from Study
  Country: US (occurrence: US)
  Receive Date: 20130405
  Receipt Date: 20130405
  Transmission Date: 20140414
  Serious: Yes (Hospitalization)
  Sender: FDA-Public Use
  Company Number: US-JNJFOC-20130317393

PATIENT
  Age: 16 Year
  Sex: Female
  Weight: 50.1 kg

DRUGS (6)
  1. REMICADE [Suspect]
     Indication: INFLAMMATORY BOWEL DISEASE
     Route: 042
     Dates: start: 200603
  2. HUMIRA [Suspect]
     Indication: INFLAMMATORY BOWEL DISEASE
     Route: 065
     Dates: start: 20090504, end: 20090701
  3. ONDANSETRON [Concomitant]
     Route: 065
  4. BUDESONIDE [Concomitant]
     Route: 065
  5. 5-ASA [Concomitant]
     Route: 048
  6. VITAMIN D [Concomitant]
     Route: 065

REACTIONS (1)
  - Gastrointestinal stoma complication [Recovered/Resolved]
